FAERS Safety Report 8994877 (Version 1)
Quarter: 2013Q1

REPORT INFORMATION
  Report Type: Spontaneous
  Country: US (occurrence: US)
  Receive Date: 20130102
  Receipt Date: 20130102
  Transmission Date: 20140127
  Serious: No
  Sender: FDA-Public Use
  Company Number: US-AMGEN-USASP2012078112

PATIENT
  Age: 24 Year
  Sex: Female

DRUGS (1)
  1. ENBREL [Suspect]
     Indication: ANKYLOSING SPONDYLITIS
     Dosage: 50 MG, EVERY OTHER WEEK
     Dates: start: 20030101, end: 20121116

REACTIONS (2)
  - Endometriosis [Not Recovered/Not Resolved]
  - Polycystic ovaries [Not Recovered/Not Resolved]
